FAERS Safety Report 22006744 (Version 1)
Quarter: 2023Q1

REPORT INFORMATION
  Report Type: Spontaneous
  Country: US (occurrence: US)
  Receive Date: 20230217
  Receipt Date: 20230217
  Transmission Date: 20230418
  Serious: Yes (Hospitalization, Other)
  Sender: FDA-Public Use
  Company Number: US-OTSUKA-2023_004238

PATIENT
  Age: 5 Year
  Sex: Male

DRUGS (1)
  1. BREXPIPRAZOLE [Suspect]
     Active Substance: BREXPIPRAZOLE
     Indication: Product used for unknown indication
     Dosage: 5 TO 8 TABLETS OF HIS FATHER^S 2 MG
     Route: 048

REACTIONS (14)
  - Dysarthria [Recovered/Resolved]
  - Crying [Unknown]
  - Tongue movement disturbance [Unknown]
  - Mental status changes [Unknown]
  - Drooling [Recovered/Resolved]
  - Gait disturbance [Unknown]
  - Flushing [Unknown]
  - Electrocardiogram QT prolonged [Unknown]
  - Accidental overdose [Unknown]
  - Slow speech [Recovered/Resolved]
  - Rash maculo-papular [Unknown]
  - Hypertonia [Recovered/Resolved]
  - Somnolence [Recovered/Resolved]
  - Accidental exposure to product by child [Unknown]
